FAERS Safety Report 7053623-8 (Version None)
Quarter: 2010Q4

REPORT INFORMATION
  Report Type: 
  Country: None (occurrence: None)
  Receive Date: 20101020
  Receipt Date: 20101006
  Transmission Date: 20110411
  Serious: Yes (Other)
  Sender: FDA-Public Use
  Company Number: US-ROCHE-722282

PATIENT
  Sex: Female
  Weight: 66.7 kg

DRUGS (2)
  1. ACCUTANE [Suspect]
     Indication: ACNE
     Route: 065
     Dates: start: 19990201, end: 19990406
  2. ORTHO CYCLEN-28 [Concomitant]
     Indication: CONTRACEPTION

REACTIONS (6)
  - COLITIS ULCERATIVE [None]
  - CROHN'S DISEASE [None]
  - DEPRESSION [None]
  - INFLAMMATORY BOWEL DISEASE [None]
  - INTENTIONAL SELF-INJURY [None]
  - SUICIDAL IDEATION [None]
